FAERS Safety Report 8787804 (Version 1)
Quarter: 2012Q4

REPORT INFORMATION
  Report Type: 
  Country: AU (occurrence: AU)
  Receive Date: 20120914
  Receipt Date: 20120914
  Transmission Date: 20130627
  Serious: Yes (Other)
  Sender: FDA-Public Use
  Company Number: PHHY2012AU078702

PATIENT
  Age: 40 Year
  Sex: Female

DRUGS (2)
  1. ASCORBIC ACID [Suspect]
     Route: 042
  2. FLUDEOXYGLUCOSE (18F) [Concomitant]

REACTIONS (5)
  - Hyperglycaemia [Recovering/Resolving]
  - Malaise [Unknown]
  - Palpitations [Unknown]
  - Hyperhidrosis [Unknown]
  - Anxiety [Unknown]
